FAERS Safety Report 23073787 (Version 2)
Quarter: 2023Q4

REPORT INFORMATION
  Report Type: Spontaneous
  Country: GB (occurrence: GB)
  Receive Date: 20231017
  Receipt Date: 20231108
  Transmission Date: 20240110
  Serious: No
  Sender: FDA-Public Use
  Company Number: GB-PFIZER INC-PV202300144484

PATIENT
  Age: 21 Year
  Sex: Male

DRUGS (2)
  1. GENOTROPIN [Suspect]
     Active Substance: SOMATROPIN
     Indication: Hyperpituitarism
     Dosage: 0.3 MG, DAILY
     Route: 058
     Dates: start: 20230802
  2. GENOTROPIN [Suspect]
     Active Substance: SOMATROPIN
     Indication: Brain injury

REACTIONS (7)
  - Off label use [Unknown]
  - Product preparation error [Unknown]
  - Drug dose omission by device [Unknown]
  - Poor quality device used [Unknown]
  - Liquid product physical issue [Unknown]
  - Device breakage [Unknown]
  - Device issue [Unknown]
